FAERS Safety Report 6305103-2 (Version None)
Quarter: 2009Q3

REPORT INFORMATION
  Report Type: 
  Country: None (occurrence: None)
  Receive Date: 20090811
  Receipt Date: 20090811
  Transmission Date: 20100115
  Serious: Yes (Other)
  Sender: FDA-Public Use
  Company Number: US-PFIZER INC-2009229608

PATIENT
  Sex: Female
  Weight: 79.365 kg

DRUGS (7)
  1. XALATAN [Suspect]
     Indication: GLAUCOMA
     Dosage: 2 GTT, 1X/DAY
     Dates: start: 20090301
  2. METOPROLOL - SLOW RELEASE [Interacting]
     Dates: end: 20090601
  3. XAL-EASE [Concomitant]
     Dates: start: 20090101
  4. DRUG, UNSPECIFIED [Concomitant]
     Dosage: UNK
  5. LIPITOR [Concomitant]
     Dosage: UNK
  6. VICODIN [Concomitant]
     Dosage: UNK
  7. MULTI-VITAMINS [Concomitant]
     Dosage: UNK

REACTIONS (4)
  - ASTHMA [None]
  - DRUG INTERACTION [None]
  - GLAUCOMA [None]
  - OCULAR HYPERAEMIA [None]
